FAERS Safety Report 6552109-4 (Version None)
Quarter: 2010Q1

REPORT INFORMATION
  Report Type: 
  Country: None (occurrence: None)
  Receive Date: 20100120
  Receipt Date: 20100113
  Transmission Date: 20100710
  Serious: Yes (Hospitalization)
  Sender: FDA-Public Use
  Company Number: DSA_31744_2008

PATIENT
  Age: 80 Year
  Sex: Female

DRUGS (8)
  1. ENALAPRIL MALEATE [Suspect]
     Indication: DRUG USE FOR UNKNOWN INDICATION
     Dosage: (5 MG, QD), (10 MG QD)
  2. GUAIFENESIN / CODEINE [Suspect]
     Indication: COUGH
     Dosage: (DF)
  3. HYDROCHLOROTHIAZIDE [Concomitant]
  4. ALENDRONATE SODIUM [Concomitant]
  5. CALCIUM [Concomitant]
  6. ACETAMINOPHEN [Concomitant]
  7. GUAIFENESIN/CODEINE [Concomitant]
  8. LEVOFLOXACIN [Concomitant]

REACTIONS (8)
  - CLOSTRIDIUM DIFFICILE COLITIS [None]
  - CONFUSIONAL STATE [None]
  - DEHYDRATION [None]
  - DELIRIUM [None]
  - DRUG PRESCRIBING ERROR [None]
  - IATROGENIC INJURY [None]
  - PNEUMONIA ASPIRATION [None]
  - PSEUDOMEMBRANOUS COLITIS [None]
